FAERS Safety Report 11272231 (Version 1)
Quarter: 2015Q2

REPORT INFORMATION
  Report Type: Spontaneous
  Country: US (occurrence: None)
  Receive Date: 20150625
  Receipt Date: 20150625
  Transmission Date: 20150821
  Serious: No
  Sender: FDA-Public Use
  Company Number: A-US2014-107528

PATIENT
  Age: 87 Year
  Sex: Female

DRUGS (4)
  1. TAMIFLU (OSEL TAMIVIR PHOSPHATE) [Concomitant]
  2. ADCIRCA [Concomitant]
     Active Substance: TADALAFIL
  3. OPSUMIT [Suspect]
     Active Substance: MACITENTAN
     Indication: COR PULMONALE CHRONIC
     Route: 048
     Dates: start: 20141008
  4. TYVASO (TREPORSTINIL SODIUM) [Concomitant]

REACTIONS (6)
  - Feeling cold [None]
  - Night sweats [None]
  - Orthostatic hypotension [None]
  - Dizziness [None]
  - Bronchitis [None]
  - Condition aggravated [None]
